FAERS Safety Report 5515666-2 (Version None)
Quarter: 2007Q4

REPORT INFORMATION
  Report Type: 
  Country: None (occurrence: None)
  Receive Date: 20071113
  Receipt Date: 20070806
  Transmission Date: 20080405
  Serious: No
  Sender: FDA-Public Use
  Company Number: A0668380A

PATIENT
  Age: 82 Year
  Sex: Female

DRUGS (7)
  1. COREG [Suspect]
     Indication: HYPERTENSION
     Dosage: 18.75MG THREE TIMES PER DAY
     Route: 048
     Dates: start: 20070101
  2. MORPHINE [Concomitant]
  3. VICODIN [Concomitant]
  4. BENICAR [Concomitant]
  5. NORVASC [Concomitant]
  6. UNKNOWN MEDICATION [Concomitant]
  7. PRILOSEC [Concomitant]

REACTIONS (3)
  - ABDOMINAL PAIN UPPER [None]
  - BLOOD PRESSURE DECREASED [None]
  - BLOOD PRESSURE FLUCTUATION [None]
